FAERS Safety Report 24337881 (Version 1)
Quarter: 2024Q3

REPORT INFORMATION
  Report Type: Spontaneous
  Country: RU (occurrence: RU)
  Receive Date: 20240919
  Receipt Date: 20240919
  Transmission Date: 20241016
  Serious: Yes (Death, Life-Threatening, Other)
  Sender: Unknown Manufacturer
  Company Number: RU-AstraZeneca-2024A207926

PATIENT

DRUGS (7)
  1. METOPROLOL SUCCINATE [Suspect]
     Active Substance: METOPROLOL SUCCINATE
     Indication: Cardiac failure
     Dosage: 75 MILLIGRAM, BID
     Route: 048
  2. DAPAGLIFLOZIN [Suspect]
     Active Substance: DAPAGLIFLOZIN
     Indication: Product used for unknown indication
     Route: 048
  3. LEVOFLOXACIN [Concomitant]
     Active Substance: LEVOFLOXACIN
     Indication: Product used for unknown indication
     Dosage: 500 MILLIGRAM, BID
  4. SACUBITRIL\VALSARTAN [Concomitant]
     Active Substance: SACUBITRIL\VALSARTAN
     Indication: Product used for unknown indication
     Dosage: 50 MILLIGRAM, BID
  5. SPIRONOLACTONE [Concomitant]
     Active Substance: SPIRONOLACTONE
     Indication: Product used for unknown indication
     Dosage: UNK
  6. IVABRADINE [IVABRADINE HYDROCHLORIDE] [Concomitant]
     Indication: Product used for unknown indication
     Dosage: UNK
  7. ATORVASTATIN CALCIUM [Concomitant]
     Active Substance: ATORVASTATIN CALCIUM
     Indication: Product used for unknown indication
     Dosage: 40 MILLIGRAM, QD

REACTIONS (2)
  - Cardiac failure [Fatal]
  - Atrial flutter [Unknown]
